FAERS Safety Report 16841408 (Version 1)
Quarter: 2019Q3

REPORT INFORMATION
  Report Type: Spontaneous
  Country: DE (occurrence: DE)
  Receive Date: 20190923
  Receipt Date: 20190923
  Transmission Date: 20191005
  Serious: Yes (Other)
  Sender: FDA-Public Use
  Company Number: DE-GLAXOSMITHKLINE-DE2019168469

PATIENT
  Age: 81 Year
  Sex: Male

DRUGS (28)
  1. SALBUTAMOL [Concomitant]
     Active Substance: ALBUTEROL
     Indication: PRODUCT USED FOR UNKNOWN INDICATION
     Dosage: UNK
     Route: 065
  2. PREGABALINE [Concomitant]
     Active Substance: PREGABALIN
     Indication: PRODUCT USED FOR UNKNOWN INDICATION
     Dosage: 25 MG, QD
     Route: 065
  3. DIPHTHERIA TETANUS PERTUSSIS (A OR W NOT KNOWN) [Concomitant]
     Indication: TETANUS
  4. TAMSU-Q [Concomitant]
     Indication: PRODUCT USED FOR UNKNOWN INDICATION
     Dosage: 0.4 MG, UNK
     Route: 065
  5. POLIOMYELITIS VACCINE NOS [Concomitant]
     Active Substance: POLIOMYELITIS VACCINE
     Indication: TETANUS
  6. INSUMAN COMB [Concomitant]
     Active Substance: INSULIN HUMAN
     Indication: PRODUCT USED FOR UNKNOWN INDICATION
     Dosage: 6 IU, UNK
     Route: 065
     Dates: start: 20190822
  7. AMLODIPINE [Concomitant]
     Active Substance: AMLODIPINE BESYLATE
     Indication: PRODUCT USED FOR UNKNOWN INDICATION
     Dosage: 5 MG, UNK
     Route: 065
  8. SALBUTAMOL [Suspect]
     Active Substance: ALBUTEROL
     Indication: PRODUCT USED FOR UNKNOWN INDICATION
     Dosage: 0.1 MG, UNK
     Route: 055
  9. CLOPIDOGREL [Concomitant]
     Active Substance: CLOPIDOGREL BISULFATE
     Indication: PRODUCT USED FOR UNKNOWN INDICATION
     Dosage: 75 MG, QD
     Route: 065
  10. DIPHTHERIA TETANUS PERTUSSIS (A OR W NOT KNOWN) [Concomitant]
     Indication: POLIOMYELITIS
     Route: 065
     Dates: start: 20190521, end: 20190521
  11. DIPHTHERIA TETANUS PERTUSSIS (A OR W NOT KNOWN) [Concomitant]
     Indication: PERTUSSIS
  12. JARDIANCE [Concomitant]
     Active Substance: EMPAGLIFLOZIN
     Indication: PRODUCT USED FOR UNKNOWN INDICATION
     Dosage: 10 MG, UNK
     Route: 065
  13. TRAZODON NEURAXPHARM [Concomitant]
     Active Substance: TRAZODONE HYDROCHLORIDE
     Indication: PRODUCT USED FOR UNKNOWN INDICATION
     Dosage: 50 MG, QD
     Route: 065
  14. SYMBICORT [Concomitant]
     Active Substance: BUDESONIDE\FORMOTEROL FUMARATE DIHYDRATE
     Indication: PRODUCT USED FOR UNKNOWN INDICATION
     Dosage: UNK 160/4.5 MICROGRAM
     Route: 065
  15. HYDROCHLOROTHIAZIDE. [Concomitant]
     Active Substance: HYDROCHLOROTHIAZIDE
     Indication: PRODUCT USED FOR UNKNOWN INDICATION
     Dosage: UNK
     Route: 065
  16. FERRO SANOL [Concomitant]
     Active Substance: FERROUS GLYCINE SULFATE
     Indication: PRODUCT USED FOR UNKNOWN INDICATION
     Dosage: UNK UNK, QD
     Route: 065
  17. CANDESARTAN. [Concomitant]
     Active Substance: CANDESARTAN
     Indication: PRODUCT USED FOR UNKNOWN INDICATION
     Dosage: 32 MG, QD
     Route: 065
  18. TRENANTONE [Suspect]
     Active Substance: LEUPROLIDE ACETATE
     Indication: PROSTATE CANCER
     Dosage: 11.25 MG, UNK (Q3MONTHS)
     Route: 065
     Dates: start: 20190129, end: 20190702
  19. NOVAMINSULFON [Concomitant]
     Active Substance: METAMIZOLE
     Indication: PRODUCT USED FOR UNKNOWN INDICATION
     Dosage: UNK
     Route: 065
  20. SYMBICORT [Concomitant]
     Active Substance: BUDESONIDE\FORMOTEROL FUMARATE DIHYDRATE
     Dosage: UNK UNK, QD 640/18 MICROGRAM
     Route: 065
  21. TORASEMIDE [Concomitant]
     Active Substance: TORSEMIDE
     Indication: PRODUCT USED FOR UNKNOWN INDICATION
     Dosage: 10 MG, QD
     Route: 065
  22. L-THYROXIN [Suspect]
     Active Substance: LEVOTHYROXINE SODIUM
     Indication: SURGERY
     Dosage: 75 ?G, QD
     Route: 065
  23. POLIOMYELITIS VACCINE NOS [Concomitant]
     Active Substance: POLIOMYELITIS VACCINE
     Indication: PERTUSSIS
     Route: 065
  24. POLIOMYELITIS VACCINE NOS [Concomitant]
     Active Substance: POLIOMYELITIS VACCINE
     Indication: POLIOMYELITIS
  25. DORZOLAMIDE [Concomitant]
     Active Substance: DORZOLAMIDE
     Indication: PRODUCT USED FOR UNKNOWN INDICATION
     Dosage: 40 MG, QD
     Route: 065
  26. JANUVIA [Concomitant]
     Active Substance: SITAGLIPTIN PHOSPHATE
     Indication: PRODUCT USED FOR UNKNOWN INDICATION
     Dosage: 50 MG, UNK
     Route: 065
  27. ESOMEPRAZOLE. [Concomitant]
     Active Substance: ESOMEPRAZOLE MAGNESIUM
     Indication: PRODUCT USED FOR UNKNOWN INDICATION
     Dosage: 20 MG, UNK
     Route: 065
  28. DIPHTHERIA TETANUS PERTUSSIS (A OR W NOT KNOWN) [Concomitant]
     Indication: DIPHTHERIA

REACTIONS (40)
  - Blood pressure fluctuation [Not Recovered/Not Resolved]
  - Pollakiuria [Unknown]
  - Hot flush [Unknown]
  - Increased appetite [Unknown]
  - Decreased appetite [Recovered/Resolved]
  - Arrhythmia [Unknown]
  - Arthralgia [Unknown]
  - Weight increased [Unknown]
  - Blood creatinine increased [Not Recovered/Not Resolved]
  - Pain in extremity [Unknown]
  - Procalcitonin increased [Unknown]
  - Depression [Unknown]
  - Pneumonia [Unknown]
  - Taste disorder [Unknown]
  - Nervousness [Unknown]
  - Blood glucose increased [Unknown]
  - Fatigue [Unknown]
  - Haematocrit decreased [Unknown]
  - Bone pain [Not Recovered/Not Resolved]
  - C-reactive protein increased [Unknown]
  - Dizziness [Not Recovered/Not Resolved]
  - Micturition urgency [Unknown]
  - Blood uric acid increased [Unknown]
  - Testicular pain [Unknown]
  - Palpitations [Unknown]
  - Night sweats [Unknown]
  - Blood urea increased [Unknown]
  - Dry skin [Unknown]
  - Hyperhidrosis [Recovered/Resolved]
  - Headache [Unknown]
  - Nocturia [Unknown]
  - Flatulence [Not Recovered/Not Resolved]
  - Stress [Unknown]
  - Head discomfort [Unknown]
  - Dysuria [Unknown]
  - Abdominal pain upper [Not Recovered/Not Resolved]
  - Insomnia [Not Recovered/Not Resolved]
  - Myalgia [Unknown]
  - Red blood cell count decreased [Unknown]
  - Gamma-glutamyltransferase increased [Unknown]

NARRATIVE: CASE EVENT DATE: 2019
